FAERS Safety Report 18027119 (Version 1)
Quarter: 2020Q3

REPORT INFORMATION
  Report Type: Spontaneous
  Country: ES (occurrence: ES)
  Receive Date: 20200715
  Receipt Date: 20200715
  Transmission Date: 20201103
  Serious: Yes (Disabling)
  Sender: FDA-Public Use
  Company Number: ES-BAUSCH-BL-2020-019234

PATIENT
  Age: 66 Year
  Sex: Female
  Weight: 55 kg

DRUGS (5)
  1. XELEVIA [Concomitant]
     Active Substance: SITAGLIPTIN PHOSPHATE
     Indication: TYPE 2 DIABETES MELLITUS
     Route: 048
  2. INSULIN GLARGINE [Suspect]
     Active Substance: INSULIN GLARGINE
     Route: 058
     Dates: start: 2018
  3. JARDIANCE [Concomitant]
     Active Substance: EMPAGLIFLOZIN
     Indication: TYPE 2 DIABETES MELLITUS
     Route: 048
  4. METFORMIN HYDROCHLORIDE. [Suspect]
     Active Substance: METFORMIN HYDROCHLORIDE
     Indication: TYPE 2 DIABETES MELLITUS
     Route: 065
     Dates: start: 20200622
  5. INSULIN GLARGINE [Suspect]
     Active Substance: INSULIN GLARGINE
     Indication: TYPE 2 DIABETES MELLITUS
     Route: 058
     Dates: start: 201602

REACTIONS (17)
  - Toe amputation [Unknown]
  - Visual impairment [Not Recovered/Not Resolved]
  - Debridement [Unknown]
  - Condition aggravated [Not Recovered/Not Resolved]
  - Eating disorder [Recovered/Resolved]
  - Gait inability [Recovering/Resolving]
  - Dizziness [Not Recovered/Not Resolved]
  - Skin discolouration [Unknown]
  - Dyspepsia [Not Recovered/Not Resolved]
  - Vomiting [Not Recovered/Not Resolved]
  - Diarrhoea [Not Recovered/Not Resolved]
  - Vascular graft [Unknown]
  - Intentional product misuse [Unknown]
  - Amputation stump pain [Unknown]
  - Intentional dose omission [Unknown]
  - Glycosylated haemoglobin increased [Recovering/Resolving]
  - Blood glucose increased [Unknown]

NARRATIVE: CASE EVENT DATE: 201705
